FAERS Safety Report 25887956 (Version 1)
Quarter: 2025Q4

REPORT INFORMATION
  Report Type: Spontaneous
  Country: EU (occurrence: EU)
  Receive Date: 20251007
  Receipt Date: 20251007
  Transmission Date: 20260117
  Serious: Yes (Other)
  Sender: GLAXOSMITHKLINE
  Company Number: None

PATIENT
  Age: 8 Year
  Sex: Male
  Weight: 29 kg

DRUGS (1)
  1. FLUTICASONE PROPIONATE [Suspect]
     Active Substance: FLUTICASONE PROPIONATE
     Indication: Asthma
     Dosage: 2 PUFF(S), BID (2 PUFFS MORNING AND EVENING)

REACTIONS (1)
  - Vernal keratoconjunctivitis [Not Recovered/Not Resolved]

NARRATIVE: CASE EVENT DATE: 20241120
